FAERS Safety Report 8131285-6 (Version None)
Quarter: 2012Q1

REPORT INFORMATION
  Report Type: 
  Country: None (occurrence: None)
  Receive Date: 20120213
  Receipt Date: 20120206
  Transmission Date: 20120608
  Serious: Yes (Hospitalization, Other)
  Sender: FDA-Public Use
  Company Number: US-AMGEN-USASP2012007838

PATIENT
  Sex: Female

DRUGS (1)
  1. EPOGEN [Suspect]
     Indication: ANAEMIA OF CHRONIC DISEASE
     Dosage: UNK

REACTIONS (3)
  - RENAL FAILURE CHRONIC [None]
  - MULTIPLE MYELOMA [None]
  - ANAEMIA [None]
